FAERS Safety Report 6603219-4 (Version None)
Quarter: 2010Q1

REPORT INFORMATION
  Report Type: 
  Country: None (occurrence: None)
  Receive Date: 20100226
  Receipt Date: 20100223
  Transmission Date: 20100710
  Serious: Yes (Death)
  Sender: FDA-Public Use
  Company Number: US-SANOFI-AVENTIS-2010SA010830

PATIENT
  Sex: Male

DRUGS (2)
  1. AMBIEN [Suspect]
     Route: 048
  2. MUSCLE RELAXANTS [Suspect]
     Route: 065

REACTIONS (1)
  - ASTHMA [None]
